FAERS Safety Report 13426915 (Version 3)
Quarter: 2017Q2

REPORT INFORMATION
  Report Type: Spontaneous
  Country: US (occurrence: US)
  Receive Date: 20170411
  Receipt Date: 20170420
  Transmission Date: 20170830
  Serious: No
  Sender: FDA-Public Use
  Company Number: US-PFIZER INC-2017158115

PATIENT
  Age: 33 Year
  Sex: Female
  Weight: 89 kg

DRUGS (3)
  1. MORPHINE SULFATE. [Suspect]
     Active Substance: MORPHINE SULFATE
     Indication: COMPLEX REGIONAL PAIN SYNDROME
     Dosage: UNK
     Dates: start: 2009, end: 201702
  2. MORPHINE SULFATE. [Suspect]
     Active Substance: MORPHINE SULFATE
     Dosage: 15 MG, 2X/DAY
     Route: 048
  3. GABAPENTIN. [Concomitant]
     Active Substance: GABAPENTIN
     Indication: TREMOR
     Dosage: 300 MG, 2X/DAY
     Route: 048
     Dates: start: 2009

REACTIONS (1)
  - Fatigue [Unknown]

NARRATIVE: CASE EVENT DATE: 2009
